FAERS Safety Report 7996756-1 (Version None)
Quarter: 2011Q4

REPORT INFORMATION
  Report Type: 
  Country: None (occurrence: None)
  Receive Date: 20111221
  Receipt Date: 20111207
  Transmission Date: 20120403
  Serious: Yes (Other)
  Sender: FDA-Public Use
  Company Number: DE-MYLANLABS-2011S1019490

PATIENT
  Age: 70 Year
  Sex: Female
  Weight: 98 kg

DRUGS (2)
  1. GABAPENTIN [Suspect]
     Indication: PAIN IN EXTREMITY
     Route: 048
     Dates: start: 20110401, end: 20110912
  2. IRBESARTAN [Concomitant]
     Indication: HYPERTENSION
     Route: 048

REACTIONS (23)
  - SPEECH DISORDER [None]
  - GINGIVITIS [None]
  - INFLUENZA LIKE ILLNESS [None]
  - SOMNOLENCE [None]
  - DECREASED APPETITE [None]
  - TACHYCARDIA [None]
  - MUSCLE SPASMS [None]
  - DIZZINESS [None]
  - PRURITUS [None]
  - ALOPECIA [None]
  - NERVOUSNESS [None]
  - ABDOMINAL PAIN UPPER [None]
  - ABDOMINAL PAIN [None]
  - ANXIETY [None]
  - INCREASED APPETITE [None]
  - DIPLOPIA [None]
  - INCONTINENCE [None]
  - DYSPNOEA [None]
  - MYALGIA [None]
  - MOOD SWINGS [None]
  - NAUSEA [None]
  - AGGRESSION [None]
  - FLATULENCE [None]
